FAERS Safety Report 15718088 (Version 1)
Quarter: 2018Q4

REPORT INFORMATION
  Report Type: Spontaneous
  Country: US (occurrence: US)
  Receive Date: 20181213
  Receipt Date: 20181213
  Transmission Date: 20190205
  Serious: No
  Sender: FDA-Public Use
  Company Number: US-ASTELLAS-2018US002283

PATIENT
  Age: 63 Year
  Sex: Female

DRUGS (2)
  1. TARCEVA [Suspect]
     Active Substance: ERLOTINIB HYDROCHLORIDE
     Indication: LUNG NEOPLASM MALIGNANT
     Route: 048
     Dates: start: 20171004
  2. TARCEVA [Suspect]
     Active Substance: ERLOTINIB HYDROCHLORIDE
     Route: 048
     Dates: start: 20180109

REACTIONS (5)
  - Rash [Unknown]
  - Skin irritation [Unknown]
  - Alopecia [Unknown]
  - Fatigue [Not Recovered/Not Resolved]
  - Diarrhoea [Unknown]

NARRATIVE: CASE EVENT DATE: 201711
